FAERS Safety Report 23422597 (Version 1)
Quarter: 2024Q1

REPORT INFORMATION
  Report Type: Spontaneous
  Country: CA (occurrence: CA)
  Receive Date: 20240119
  Receipt Date: 20240119
  Transmission Date: 20240409
  Serious: Yes (Life-Threatening, Hospitalization, Other)
  Sender: FDA-Public Use
  Company Number: CA-FreseniusKabi-FK202400843

PATIENT
  Age: 11 Year
  Sex: Male
  Weight: 31 kg

DRUGS (4)
  1. ETOPOSIDE [Suspect]
     Active Substance: ETOPOSIDE
     Indication: Chemotherapy
     Dosage: DOSAGE FORM: NOT SPECIFIED
     Route: 065
  2. CYCLOPHOSPHAMIDE [Suspect]
     Active Substance: CYCLOPHOSPHAMIDE
     Indication: Chemotherapy
     Dosage: NOT SPECIFIED?INTRAVENOUS
  3. CYTARABINE [Suspect]
     Active Substance: CYTARABINE
     Indication: Product used for unknown indication
     Dosage: NOT SPECIFIED?UNKNOWN
  4. THIOGUANINE [Suspect]
     Active Substance: THIOGUANINE
     Indication: Product used for unknown indication
     Dosage: NOT SPECIFIED?UNKNOWN

REACTIONS (2)
  - Product use issue [Recovering/Resolving]
  - Febrile neutropenia [Recovering/Resolving]
